FAERS Safety Report 4499420-9 (Version None)
Quarter: 2004Q4

REPORT INFORMATION
  Report Type: 
  Country: None (occurrence: None)
  Receive Date: 20041111
  Receipt Date: 20041028
  Transmission Date: 20050328
  Serious: Yes (Hospitalization)
  Sender: FDA-Public Use
  Company Number: ZA-MERCK-0410ZAF00042

PATIENT

DRUGS (3)
  1. PRIMAXIN [Suspect]
     Indication: PROPHYLAXIS
     Route: 041
     Dates: start: 20041001
  2. WARFARIN [Concomitant]
     Indication: MYOCARDIAL INFARCTION
     Route: 048
  3. HEPARIN [Concomitant]
     Indication: MYOCARDIAL INFARCTION
     Route: 051
     Dates: end: 20041001

REACTIONS (1)
  - THROMBOCYTOPENIA [None]
